FAERS Safety Report 7750197-0 (Version None)
Quarter: 2011Q3

REPORT INFORMATION
  Report Type: 
  Country: None (occurrence: None)
  Receive Date: 20110912
  Receipt Date: 20110830
  Transmission Date: 20111222
  Serious: Yes (Disabling)
  Sender: FDA-Public Use
  Company Number: GER/UKI/11/0020980

PATIENT
  Age: 82 Year
  Sex: Female
  Weight: 61.7 kg

DRUGS (17)
  1. LANSOPRAZOLE [Concomitant]
  2. SIMVASTATIN [Concomitant]
  3. SENNA (SENNA ALEXANDRINA) [Concomitant]
  4. DOMPERIDONE (DOMPERIDONE) [Concomitant]
  5. METFORMIN HCL [Concomitant]
  6. ZOPICLONE (ZOPICLONE) [Concomitant]
  7. TOLBUTAMIDE [Concomitant]
  8. LISINOPRIL [Concomitant]
  9. ALENDRONATE SODIUM [Suspect]
  10. ARICEPT [Suspect]
     Dosage: 10 MG, 1 IN 1 D, ORAL
     Route: 048
     Dates: start: 20060101
  11. LETROZOLE [Concomitant]
  12. AMLODIPINE [Concomitant]
  13. ATENOLOL [Concomitant]
  14. CITALOPRAM HYDROBROMIDE [Concomitant]
  15. FUROSEMIDE [Concomitant]
  16. ACETAMINOPHEN [Concomitant]
  17. ASPIRIN [Concomitant]

REACTIONS (3)
  - WEIGHT DECREASED [None]
  - NAUSEA [None]
  - VOMITING [None]
